FAERS Safety Report 14630446 (Version 1)
Quarter: 2018Q1

REPORT INFORMATION
  Report Type: Spontaneous
  Country: US (occurrence: US)
  Receive Date: 20180313
  Receipt Date: 20180313
  Transmission Date: 20180509
  Serious: Yes (Other)
  Sender: FDA-Public Use
  Company Number: None

PATIENT
  Age: 38 Year
  Sex: Male
  Weight: 77.56 kg

DRUGS (5)
  1. OLD SPICE SHOWER + BATH LIQUID HAIR + BODY WASH HIGH ENDURANCE CONDITIONING HAIR + BODY WASH 532ML 1 [Suspect]
     Active Substance: COSMETICS
     Dosage: UNSURE OF AMOUNT 1-2 TIMES PER DAY TOPICAL
     Route: 061
  2. OLD SPICE MALE SHAMPOO BASE SWAGGER SHAMPOO + CONDITIONER 355ML, THE PROCTER AND GAMBLE COMPANY, LOT# 62455395VA [Suspect]
     Active Substance: COSMETICS
     Dosage: 2 SWIPES PER UNDERARM 1-2 TIMES PER DAY???
     Route: 061
     Dates: end: 20170309
  3. OLD SPICE RED ZONE COLLECTION SWAGGER [Suspect]
     Active Substance: ALUMINUM ZIRCONIUM OCTACHLOROHYDREX GLY\ALUMINUM ZIRCONIUM TRICHLOROHYDREX GLY
     Dosage: 2 SWIPES PER UNDERARM 1-2 TIMES PER DAY TOPICAL
     Route: 061
     Dates: end: 20170309
  4. ALBUTEROL. [Suspect]
     Active Substance: ALBUTEROL
  5. SALBUTAMOL [Concomitant]
     Active Substance: ALBUTEROL

REACTIONS (27)
  - Chemical burn of skin [None]
  - Hypersensitivity [None]
  - Application site reaction [None]
  - Blister [None]
  - Abscess [None]
  - Furuncle [None]
  - Skin swelling [None]
  - Pruritus [None]
  - Feeling hot [None]
  - Rash papular [None]
  - Erythema [None]
  - Pharyngeal oedema [None]
  - Throat irritation [None]
  - Dermal cyst [None]
  - Lymphadenopathy [None]
  - Macule [None]
  - Oropharyngeal pain [None]
  - Skin infection [None]
  - Skin exfoliation [None]
  - Urticaria [None]
  - Rash generalised [None]
  - Skin burning sensation [None]
  - Axillary pain [None]
  - Rash erythematous [None]
  - Pharyngitis [None]
  - Hyperaesthesia [None]
  - Erythema multiforme [None]

NARRATIVE: CASE EVENT DATE: 201702
